FAERS Safety Report 7603233-6 (Version None)
Quarter: 2011Q3

REPORT INFORMATION
  Report Type: 
  Country: None (occurrence: None)
  Receive Date: 20110712
  Receipt Date: 20110707
  Transmission Date: 20111222
  Serious: Yes (Other)
  Sender: FDA-Public Use
  Company Number: US-PFIZER INC-2011153615

PATIENT
  Sex: Female
  Weight: 72.562 kg

DRUGS (5)
  1. SINGULAIR [Concomitant]
     Indication: ASTHMA
  2. LYRICA [Suspect]
     Indication: NEURALGIA
     Dosage: 150 MG, 3X/DAY
     Route: 048
     Dates: start: 20110301
  3. BENADRYL [Concomitant]
     Indication: HYPERSENSITIVITY
     Dosage: UNK
  4. SINGULAIR [Concomitant]
     Indication: HYPERSENSITIVITY
     Dosage: UNK
  5. BENADRYL [Concomitant]
     Indication: ASTHMA

REACTIONS (1)
  - FUNGAL INFECTION [None]
